FAERS Safety Report 9438150 (Version 1)
Quarter: 2013Q3

REPORT INFORMATION
  Report Type: Spontaneous
  Country: US (occurrence: None)
  Receive Date: 20130802
  Receipt Date: 20130802
  Transmission Date: 20140515
  Serious: Yes (Hospitalization)
  Sender: FDA-Public Use
  Company Number: None

PATIENT
  Age: 88 Year
  Sex: Male

DRUGS (1)
  1. ZYTIGA 250?MG JANSSEN [Suspect]
     Indication: PROSTATIC DISORDER
     Route: 048
     Dates: start: 20110627

REACTIONS (2)
  - Atrial fibrillation [None]
  - Cardiac failure congestive [None]
